FAERS Safety Report 5243939-X (Version None)
Quarter: 2007Q1

REPORT INFORMATION
  Report Type: 
  Country: None (occurrence: None)
  Receive Date: 20070215
  Receipt Date: 20070201
  Transmission Date: 20070707
  Serious: Yes (Other)
  Sender: FDA-Public Use
  Company Number: 231984

PATIENT
  Age: 56 Year
  Sex: Female

DRUGS (8)
  1. XOLAIR [Suspect]
     Indication: ASTHMA
     Dosage: SEE IMAGE
     Route: 042
     Dates: start: 20060801
  2. ERYTHROMYCIN [Suspect]
     Indication: RESPIRATORY TRACT INFECTION
     Dates: start: 20060801
  3. VENTOLIN (ALBUTEROL/ALBUTEROL SULFATE) [Concomitant]
  4. FLUTICASONE PROPIONATE [Concomitant]
  5. OXIS TURBOHALER (FORMOTEROL FUMARATE) [Concomitant]
  6. PREDNISONE TAB [Concomitant]
  7. SINGULAIR [Concomitant]
  8. CLARITHROMYCIN [Concomitant]

REACTIONS (1)
  - HEPATITIS [None]
